FAERS Safety Report 22272919 (Version 2)
Quarter: 2024Q1

REPORT INFORMATION
  Report Type: Report from Study
  Country: PE (occurrence: PE)
  Receive Date: 20230502
  Receipt Date: 20240323
  Transmission Date: 20240409
  Serious: Yes (Other)
  Sender: FDA-Public Use
  Company Number: PE-002147023-NVSC2023PE098425

PATIENT
  Age: 26 Year
  Sex: Female

DRUGS (3)
  1. COSENTYX [Suspect]
     Active Substance: SECUKINUMAB
     Indication: Ankylosing spondylitis
     Dosage: 150 MG, QMO
     Route: 058
  2. COSENTYX [Suspect]
     Active Substance: SECUKINUMAB
     Dosage: 150 MG, QMO
     Route: 058
     Dates: start: 202212
  3. COSENTYX [Suspect]
     Active Substance: SECUKINUMAB
     Dosage: 150 MG, QMO
     Route: 058
     Dates: start: 20221109

REACTIONS (7)
  - Uterine haemorrhage [Unknown]
  - Decreased immune responsiveness [Unknown]
  - General physical health deterioration [Unknown]
  - Influenza [Unknown]
  - Migraine [Unknown]
  - Eye haemorrhage [Unknown]
  - Wound [Unknown]

NARRATIVE: CASE EVENT DATE: 20230101
